FAERS Safety Report 5127086-3 (Version None)
Quarter: 2006Q4

REPORT INFORMATION
  Report Type: 
  Country: None (occurrence: None)
  Receive Date: 20061013
  Receipt Date: 20060830
  Transmission Date: 20070319
  Serious: Yes (Other)
  Sender: FDA-Public Use
  Company Number: AR-ABBOTT-06P-007-0343036-00

PATIENT
  Age: 28 Year
  Sex: Female
  Weight: 55 kg

DRUGS (2)
  1. HUMIRA [Suspect]
     Indication: RHEUMATOID ARTHRITIS
     Route: 058
     Dates: start: 20040101, end: 20060709
  2. HUMIRA [Suspect]

REACTIONS (3)
  - DIARRHOEA [None]
  - HEPATIC NEOPLASM [None]
  - SALMONELLOSIS [None]
